FAERS Safety Report 9204942 (Version 1)
Quarter: 2013Q1

REPORT INFORMATION
  Report Type: Spontaneous
  Country: US (occurrence: None)
  Receive Date: 20120709
  Receipt Date: 20120709
  Transmission Date: 20140127
  Serious: No
  Sender: FDA-Public Use
  Company Number: 2012HGS-003470

PATIENT
  Age: 45 Year
  Sex: Female
  Weight: 58.97 kg

DRUGS (7)
  1. BENLYSTA [Suspect]
     Indication: SYSTEMIC LUPUS ERYTHEMATOSUS
     Dosage: 1 IN 28 D, INTRAVENOUS DRIP
     Dates: start: 20120319
  2. IMURAN (AZATHIOPRINE) (AZATHIOPRINE) [Concomitant]
  3. VOLTAREN (DICLOFEN-AC SODIUM)  (DICLOFEN-AC SODIUM) [Concomitant]
  4. NEXIUM (ESOMEPRAZOLE MAGNESIUM)(ESOMEPRAZOLE MAGNESIUM) [Concomitant]
  5. OXYCODONE (OXYCODONE) (OXYCODONE) [Concomitant]
  6. ALBUTEROL (SALBUTAMOL)(SALBUTAMOL) [Concomitant]
  7. VITAMIN D (ERGOCALCIFEROL) (ERGOCALCIFEROL) [Concomitant]

REACTIONS (4)
  - Dizziness [None]
  - Fatigue [None]
  - Irritability [None]
  - Rash pruritic [None]
